FAERS Safety Report 8127790-9 (Version None)
Quarter: 2012Q1

REPORT INFORMATION
  Report Type: 
  Country: None (occurrence: None)
  Receive Date: 20120210
  Receipt Date: 20120124
  Transmission Date: 20120608
  Serious: Yes (Life-Threatening, Hospitalization)
  Sender: FDA-Public Use
  Company Number: FR-PFIZER INC-K201001475

PATIENT
  Age: 80 Year
  Sex: Female

DRUGS (9)
  1. HALOPERIDOL [Suspect]
     Dosage: 10 GTT, 1X/DAY
     Route: 048
     Dates: start: 20090427, end: 20090526
  2. HALOPERIDOL [Suspect]
     Dosage: 5 GTT, 1X/DAY
     Route: 048
     Dates: start: 20100527, end: 20100811
  3. CITALOPRAM [Suspect]
     Dosage: 10 MG, 1X/DAY
     Route: 048
     Dates: start: 20100413, end: 20100707
  4. ALTACE [Suspect]
     Dosage: 7.5 MG, 1X/DAY
     Route: 048
     Dates: start: 20091212, end: 20100812
  5. IBUPROFEN [Suspect]
     Dosage: 600 MG, 3X/DAY
     Route: 048
     Dates: start: 20091211, end: 20100303
  6. OMEPRAZOLE [Suspect]
     Dosage: 80 MG, 1X/DAY
     Route: 048
     Dates: start: 20090427, end: 20100812
  7. ALTACE [Suspect]
     Dosage: 2.5 MG, 1X/DAY
     Route: 048
     Dates: start: 20090427, end: 20091211
  8. IBUPROFEN [Suspect]
     Dosage: 600 MG, 2X/DAY
     Route: 048
     Dates: start: 20100304, end: 20100806
  9. CITALOPRAM [Suspect]
     Dosage: 20 MG, 1X/DAY
     Route: 048
     Dates: start: 20100708, end: 20100812

REACTIONS (7)
  - DEPRESSED LEVEL OF CONSCIOUSNESS [None]
  - AZOTAEMIA [None]
  - NAUSEA [None]
  - VOMITING [None]
  - RENAL FAILURE ACUTE [None]
  - DEHYDRATION [None]
  - URAEMIC GASTROPATHY [None]
